FAERS Safety Report 6401716-8 (Version None)
Quarter: 2009Q4

REPORT INFORMATION
  Report Type: 
  Country: None (occurrence: None)
  Receive Date: 20091015
  Receipt Date: 20091007
  Transmission Date: 20100525
  Serious: Yes (Other)
  Sender: FDA-Public Use
  Company Number: GB-ROCHE-661398

PATIENT
  Sex: Male

DRUGS (1)
  1. RIVOTRIL [Suspect]
     Indication: MYOCLONUS
     Dosage: CLONAZEPAM TAKEN ON AND OFF FOR 14 YEARS.
     Route: 065

REACTIONS (2)
  - GLAUCOMA [None]
  - HEAD INJURY [None]
